FAERS Safety Report 4511772-X (Version None)
Quarter: 2004Q4

REPORT INFORMATION
  Report Type: 
  Country: None (occurrence: None)
  Receive Date: 20041123
  Receipt Date: 20041123
  Transmission Date: 20050328
  Serious: Yes (Other)
  Sender: FDA-Public Use
  Company Number: None

PATIENT
  Age: 81 Year
  Sex: Male
  Weight: 95.3 kg

DRUGS (7)
  1. TERAZOSIN HCL [Suspect]
  2. TERAZOSIN HCL [Concomitant]
  3. MELOXICAM [Concomitant]
  4. OMEPRAZOLE [Concomitant]
  5. FLUNISOLIDE [Concomitant]
  6. LOVASTATIN [Concomitant]
  7. BISACODYL [Concomitant]

REACTIONS (1)
  - HYPOTENSION [None]
